FAERS Safety Report 5732407-4 (Version None)
Quarter: 2008Q2

REPORT INFORMATION
  Report Type: 
  Country: None (occurrence: None)
  Receive Date: 20080508
  Receipt Date: 20080502
  Transmission Date: 20081010
  Serious: Yes (Life-Threatening, Hospitalization)
  Sender: FDA-Public Use
  Company Number: ES-PFIZER INC-2008039105

PATIENT
  Age: 6 Month

DRUGS (1)
  1. PREDNISOLONE [Suspect]
     Indication: HAEMANGIOMA
     Dosage: DAILY DOSE:3MG/KG
     Route: 048

REACTIONS (1)
  - HYPERTROPHIC CARDIOMYOPATHY [None]
